FAERS Safety Report 23143153 (Version 1)
Quarter: 2023Q4

REPORT INFORMATION
  Report Type: Spontaneous
  Country: US (occurrence: None)
  Receive Date: 20231103
  Receipt Date: 20231103
  Transmission Date: 20240110
  Serious: Yes (Disabling, Other)
  Sender: FDA-Public Use
  Company Number: None

PATIENT
  Age: 61 Year
  Sex: Male
  Weight: 119.25 kg

DRUGS (6)
  1. ACETAMINOPHEN\HYDROCODONE [Suspect]
     Active Substance: ACETAMINOPHEN\HYDROCODONE
  2. TENS unit [Concomitant]
  3. IBUPROFEN [Concomitant]
  4. PREGABALIN [Concomitant]
  5. OXYCONTIN [Concomitant]
  6. LIDOCAINE [Concomitant]
     Active Substance: LIDOCAINE

REACTIONS (4)
  - Product availability issue [None]
  - Product use issue [None]
  - Withdrawal syndrome [None]
  - Breakthrough pain [None]

NARRATIVE: CASE EVENT DATE: 20231013
